FAERS Safety Report 6962526-6 (Version None)
Quarter: 2010Q3

REPORT INFORMATION
  Report Type: 
  Country: None (occurrence: None)
  Receive Date: 20100902
  Receipt Date: 20100824
  Transmission Date: 20110219
  Serious: Yes (Other)
  Sender: FDA-Public Use
  Company Number: US-BAYER-201031768NA

PATIENT
  Age: 21 Year
  Sex: Female

DRUGS (2)
  1. MIRENA [Suspect]
     Indication: PRODUCT USED FOR UNKNOWN INDICATION
     Route: 015
     Dates: end: 20090101
  2. MIRENA [Suspect]
     Route: 015
     Dates: start: 20100501

REACTIONS (4)
  - ABORTION SPONTANEOUS [None]
  - NAUSEA [None]
  - OVARIAN CYST [None]
  - PREGNANCY WITH CONTRACEPTIVE DEVICE [None]
